FAERS Safety Report 26001232 (Version 2)
Quarter: 2025Q4

REPORT INFORMATION
  Report Type: Report from Study
  Country: GB (occurrence: GB)
  Receive Date: 20251105
  Receipt Date: 20251127
  Transmission Date: 20260117
  Serious: Yes (Hospitalization, Other)
  Sender: ITALFARMACO SPA
  Company Number: GB-ITALFARMACO SPA-2187945

PATIENT
  Age: 15 Year
  Sex: Male
  Weight: 56.8 kg

DRUGS (1)
  1. DUVYZAT [Suspect]
     Active Substance: GIVINOSTAT
     Indication: Duchenne muscular dystrophy
     Dates: start: 20250924, end: 20251023

REACTIONS (2)
  - Epistaxis [Not Recovered/Not Resolved]
  - Platelet count decreased [Recovered/Resolved]

NARRATIVE: CASE EVENT DATE: 20251023
